FAERS Safety Report 16717773 (Version 2)
Quarter: 2019Q3

REPORT INFORMATION
  Report Type: Report from Study
  Country: CA (occurrence: CA)
  Receive Date: 20190819
  Receipt Date: 20190906
  Transmission Date: 20191005
  Serious: Yes (Death, Hospitalization, Other)
  Sender: FDA-Public Use
  Company Number: PHHY2019CA191782

PATIENT
  Age: 82 Year
  Sex: Male
  Weight: 62.6 kg

DRUGS (11)
  1. ENTRESTO [Suspect]
     Active Substance: SACUBITRIL\VALSARTAN
     Dosage: 50 MG(24MG SACUBITRIL/ 26MG VALSARTAN), QD
     Route: 048
     Dates: start: 20170711, end: 20170815
  2. FUROSEMIDE. [Concomitant]
     Active Substance: FUROSEMIDE
     Indication: PRODUCT USED FOR UNKNOWN INDICATION
     Dosage: 60 MG, UNK
     Route: 048
     Dates: start: 20170711
  3. SPIRONOLACTONE. [Concomitant]
     Active Substance: SPIRONOLACTONE
     Indication: PRODUCT USED FOR UNKNOWN INDICATION
     Dosage: 12.5 MG, UNK
     Route: 048
  4. ENTRESTO [Suspect]
     Active Substance: SACUBITRIL\VALSARTAN
     Dosage: 100 MG(49MG SACUBITRIL/ 51MG VALSARTAN), QD
     Route: 048
     Dates: start: 20170711, end: 20170815
  5. ENTRESTO [Suspect]
     Active Substance: SACUBITRIL\VALSARTAN
     Dosage: 200 MG(97MG SACUBITRIL/ 103MG VALSARTAN), BID
     Route: 048
     Dates: start: 20170831
  6. NITRO-DUR [Concomitant]
     Active Substance: NITROGLYCERIN
     Indication: ANGINA PECTORIS
     Dosage: 0.4 MG, UNK
     Route: 065
     Dates: start: 20190717, end: 20190729
  7. OXAZEPAM. [Concomitant]
     Active Substance: OXAZEPAM
     Indication: ANGINA PECTORIS
     Dosage: 0.4 MG, UNK
     Route: 048
     Dates: start: 20190717, end: 20190729
  8. ENTRESTO [Suspect]
     Active Substance: SACUBITRIL\VALSARTAN
     Dosage: 100 MG(49MG SACUBITRIL/ 51MG VALSARTAN), BID
     Route: 048
     Dates: start: 20170815, end: 20170831
  9. CARVEDILOL. [Concomitant]
     Active Substance: CARVEDILOL
     Indication: PRODUCT USED FOR UNKNOWN INDICATION
     Dosage: 12.5 MG, UNK
     Route: 048
  10. PRAVASTATIN. [Concomitant]
     Active Substance: PRAVASTATIN
     Indication: PRODUCT USED FOR UNKNOWN INDICATION
     Dosage: 20 MG, UNK
     Route: 048
  11. ENTRESTO [Suspect]
     Active Substance: SACUBITRIL\VALSARTAN
     Indication: CARDIAC FAILURE
     Dosage: 50 MG(24MG SACUBITRIL/ 26MG VALSARTAN), BID
     Route: 048
     Dates: start: 20170607, end: 20170711

REACTIONS (7)
  - Cardiac failure [Fatal]
  - Lung neoplasm malignant [Not Recovered/Not Resolved]
  - Ventricular dysfunction [Unknown]
  - Renal failure [Not Recovered/Not Resolved]
  - Pulmonary oedema [Not Recovered/Not Resolved]
  - Oesophageal adenocarcinoma [Not Recovered/Not Resolved]
  - Cardiac valve disease [Unknown]

NARRATIVE: CASE EVENT DATE: 20190711
